FAERS Safety Report 4986564-8 (Version None)
Quarter: 2006Q2

REPORT INFORMATION
  Report Type: 
  Country: None (occurrence: None)
  Receive Date: 20060428
  Receipt Date: 20050912
  Transmission Date: 20061013
  Serious: No
  Sender: FDA-Public Use
  Company Number: US-GLAXOSMITHKLINE-A0573881A

PATIENT
  Age: 2 Year
  Sex: Male

DRUGS (3)
  1. VENTOLIN [Suspect]
     Dosage: 1PUFF FOUR TIMES PER DAY
     Route: 055
     Dates: start: 20050901, end: 20050906
  2. SINGULAIR [Concomitant]
  3. ZYRTEC [Concomitant]

REACTIONS (4)
  - BLISTER [None]
  - DIARRHOEA [None]
  - RASH [None]
  - SKIN ULCER [None]
